FAERS Safety Report 5103804-5 (Version None)
Quarter: 2006Q3

REPORT INFORMATION
  Report Type: 
  Country: None (occurrence: None)
  Receive Date: 20060913
  Receipt Date: 20060908
  Transmission Date: 20061208
  Serious: Yes (Death, Hospitalization)
  Sender: FDA-Public Use
  Company Number: PHBS2006BR13739

PATIENT
  Age: 81 Year
  Sex: Female
  Weight: 54 kg

DRUGS (4)
  1. EXELON [Suspect]
     Indication: MEMORY IMPAIRMENT
     Dosage: 1.5 MG, BID
     Route: 048
     Dates: end: 20060801
  2. OS-CAL [Concomitant]
     Dosage: UNK, QD
  3. ALENDRONATE SODIUM [Concomitant]
     Indication: OSTEOPOROSIS
     Dosage: UNK, QW
  4. PHARMATON [Concomitant]

REACTIONS (3)
  - DEATH [None]
  - FEMUR FRACTURE [None]
  - SURGERY [None]
